FAERS Safety Report 6545060-7 (Version None)
Quarter: 2010Q1

REPORT INFORMATION
  Report Type: 
  Country: None (occurrence: None)
  Receive Date: 20100121
  Receipt Date: 20100115
  Transmission Date: 20100710
  Serious: Yes (Hospitalization)
  Sender: FDA-Public Use
  Company Number: B0628161A

PATIENT
  Age: 4 Year
  Sex: Male

DRUGS (2)
  1. CHLORAMBUCIL [Suspect]
     Indication: NEPHRITIC SYNDROME
     Dosage: 2MG PER DAY
     Route: 048
  2. THIOTEPA [Suspect]
     Indication: NEPHRITIC SYNDROME
     Dosage: 10MG PER DAY

REACTIONS (2)
  - CONDITION AGGRAVATED [None]
  - PANCYTOPENIA [None]
